FAERS Safety Report 20840704 (Version 3)
Quarter: 2025Q3

REPORT INFORMATION
  Report Type: Spontaneous
  Country: EU (occurrence: EU)
  Receive Date: 20220517
  Receipt Date: 20250707
  Transmission Date: 20251020
  Serious: Yes (Other)
  Sender: MYLAN
  Company Number: EU-drreddys-LIT/SPN/22/0149284

PATIENT
  Age: 53 Year
  Sex: Male

DRUGS (56)
  1. MYCOPHENOLATE MOFETIL [Suspect]
     Active Substance: MYCOPHENOLATE MOFETIL
     Indication: Prophylaxis against graft versus host disease
  2. MYCOPHENOLATE MOFETIL [Suspect]
     Active Substance: MYCOPHENOLATE MOFETIL
     Route: 065
  3. MYCOPHENOLATE MOFETIL [Suspect]
     Active Substance: MYCOPHENOLATE MOFETIL
     Route: 065
  4. MYCOPHENOLATE MOFETIL [Suspect]
     Active Substance: MYCOPHENOLATE MOFETIL
  5. BENDAMUSTINE [Suspect]
     Active Substance: BENDAMUSTINE
     Indication: Disease recurrence
     Dates: start: 201905
  6. BENDAMUSTINE [Suspect]
     Active Substance: BENDAMUSTINE
     Route: 065
     Dates: start: 201905
  7. BENDAMUSTINE [Suspect]
     Active Substance: BENDAMUSTINE
     Route: 065
     Dates: start: 201905
  8. BENDAMUSTINE [Suspect]
     Active Substance: BENDAMUSTINE
     Dates: start: 201905
  9. BUSULFAN [Suspect]
     Active Substance: BUSULFAN
     Indication: Prophylaxis against graft versus host disease
  10. BUSULFAN [Suspect]
     Active Substance: BUSULFAN
     Route: 065
  11. BUSULFAN [Suspect]
     Active Substance: BUSULFAN
     Route: 065
  12. BUSULFAN [Suspect]
     Active Substance: BUSULFAN
  13. SIROLIMUS [Suspect]
     Active Substance: SIROLIMUS
     Indication: Prophylaxis against graft versus host disease
  14. SIROLIMUS [Suspect]
     Active Substance: SIROLIMUS
     Route: 065
  15. SIROLIMUS [Suspect]
     Active Substance: SIROLIMUS
     Route: 065
  16. SIROLIMUS [Suspect]
     Active Substance: SIROLIMUS
  17. BRENTUXIMAB VEDOTIN [Suspect]
     Active Substance: BRENTUXIMAB VEDOTIN
     Indication: Disease recurrence
     Dates: start: 201905
  18. BRENTUXIMAB VEDOTIN [Suspect]
     Active Substance: BRENTUXIMAB VEDOTIN
     Route: 065
     Dates: start: 201905
  19. BRENTUXIMAB VEDOTIN [Suspect]
     Active Substance: BRENTUXIMAB VEDOTIN
     Route: 065
     Dates: start: 201905
  20. BRENTUXIMAB VEDOTIN [Suspect]
     Active Substance: BRENTUXIMAB VEDOTIN
     Dates: start: 201905
  21. FLUDARABINE [Suspect]
     Active Substance: FLUDARABINE PHOSPHATE
     Indication: Prophylaxis against graft versus host disease
  22. FLUDARABINE [Suspect]
     Active Substance: FLUDARABINE PHOSPHATE
     Route: 065
  23. FLUDARABINE [Suspect]
     Active Substance: FLUDARABINE PHOSPHATE
     Route: 065
  24. FLUDARABINE [Suspect]
     Active Substance: FLUDARABINE PHOSPHATE
  25. IFOSFAMIDE [Suspect]
     Active Substance: IFOSFAMIDE
     Indication: Disease progression
  26. IFOSFAMIDE [Suspect]
     Active Substance: IFOSFAMIDE
     Indication: Disease recurrence
  27. IFOSFAMIDE [Suspect]
     Active Substance: IFOSFAMIDE
     Route: 065
  28. IFOSFAMIDE [Suspect]
     Active Substance: IFOSFAMIDE
     Route: 065
  29. IFOSFAMIDE [Suspect]
     Active Substance: IFOSFAMIDE
  30. IFOSFAMIDE [Suspect]
     Active Substance: IFOSFAMIDE
  31. IFOSFAMIDE [Suspect]
     Active Substance: IFOSFAMIDE
     Route: 065
  32. IFOSFAMIDE [Suspect]
     Active Substance: IFOSFAMIDE
     Route: 065
  33. CYCLOPHOSPHAMIDE [Suspect]
     Active Substance: CYCLOPHOSPHAMIDE
     Indication: Prophylaxis against graft versus host disease
  34. CYCLOPHOSPHAMIDE [Suspect]
     Active Substance: CYCLOPHOSPHAMIDE
     Route: 065
  35. CYCLOPHOSPHAMIDE [Suspect]
     Active Substance: CYCLOPHOSPHAMIDE
     Route: 065
  36. CYCLOPHOSPHAMIDE [Suspect]
     Active Substance: CYCLOPHOSPHAMIDE
  37. BUSULFAN [Suspect]
     Active Substance: BUSULFAN
     Indication: Prophylaxis against graft versus host disease
  38. BUSULFAN [Suspect]
     Active Substance: BUSULFAN
     Route: 065
  39. BUSULFAN [Suspect]
     Active Substance: BUSULFAN
     Route: 065
  40. BUSULFAN [Suspect]
     Active Substance: BUSULFAN
  41. NIVOLUMAB [Concomitant]
     Active Substance: NIVOLUMAB
     Indication: Disease progression
     Dosage: 200 MILLIGRAM, Q2W, CYCLICAL
     Route: 065
     Dates: start: 201908
  42. NIVOLUMAB [Concomitant]
     Active Substance: NIVOLUMAB
     Dosage: 200 MILLIGRAM, Q2W, CYCLICAL
     Dates: start: 201908
  43. NIVOLUMAB [Concomitant]
     Active Substance: NIVOLUMAB
     Dosage: 200 MILLIGRAM, Q2W, CYCLICAL
     Dates: start: 201908
  44. NIVOLUMAB [Concomitant]
     Active Substance: NIVOLUMAB
     Dosage: 200 MILLIGRAM, Q2W, CYCLICAL
     Route: 065
     Dates: start: 201908
  45. NIVOLUMAB [Concomitant]
     Active Substance: NIVOLUMAB
     Route: 065
  46. NIVOLUMAB [Concomitant]
     Active Substance: NIVOLUMAB
  47. NIVOLUMAB [Concomitant]
     Active Substance: NIVOLUMAB
  48. NIVOLUMAB [Concomitant]
     Active Substance: NIVOLUMAB
     Route: 065
  49. CARBOPLATIN [Concomitant]
     Active Substance: CARBOPLATIN
     Indication: Disease progression
  50. CARBOPLATIN [Concomitant]
     Active Substance: CARBOPLATIN
     Route: 065
  51. CARBOPLATIN [Concomitant]
     Active Substance: CARBOPLATIN
     Route: 065
  52. CARBOPLATIN [Concomitant]
     Active Substance: CARBOPLATIN
  53. ETOPOSIDE [Concomitant]
     Active Substance: ETOPOSIDE
     Indication: Disease progression
  54. ETOPOSIDE [Concomitant]
     Active Substance: ETOPOSIDE
     Route: 065
  55. ETOPOSIDE [Concomitant]
     Active Substance: ETOPOSIDE
     Route: 065
  56. ETOPOSIDE [Concomitant]
     Active Substance: ETOPOSIDE

REACTIONS (5)
  - Disease progression [Unknown]
  - Drug ineffective [Unknown]
  - Therapy partial responder [Unknown]
  - Product use in unapproved indication [Unknown]
  - Off label use [Unknown]
